FAERS Safety Report 5173420-8 (Version None)
Quarter: 2006Q4

REPORT INFORMATION
  Report Type: 
  Country: None (occurrence: None)
  Receive Date: 20061207
  Receipt Date: 20061207
  Transmission Date: 20070319
  Serious: Yes (Other)
  Sender: FDA-Public Use
  Company Number: None

PATIENT
  Age: 9 Year
  Sex: Male
  Weight: 24.9478 kg

DRUGS (2)
  1. RISPERDAL [Suspect]
     Indication: ATTENTION DEFICIT/HYPERACTIVITY DISORDER
     Dosage: 5 M.G.  2 X DAILY  PO
     Route: 048
     Dates: start: 20050827, end: 20050914
  2. RISPERDAL [Suspect]
     Indication: BIPOLAR DISORDER
     Dosage: 5 M.G.  2 X DAILY  PO
     Route: 048
     Dates: start: 20050827, end: 20050914

REACTIONS (3)
  - BLISTER [None]
  - ERYTHEMA [None]
  - RASH PRURITIC [None]
